FAERS Safety Report 9656985 (Version 2)
Quarter: 2014Q1

REPORT INFORMATION
  Report Type: Spontaneous
  Country: US (occurrence: US)
  Receive Date: 20131030
  Receipt Date: 20140212
  Transmission Date: 20141002
  Serious: No
  Sender: FDA-Public Use
  Company Number: US-PFIZER INC-2013309358

PATIENT
  Age: 59 Year
  Sex: Female

DRUGS (3)
  1. CELEBREX [Suspect]
     Dosage: UNK
  2. TRAMADOL HCL [Suspect]
     Dosage: UNK
  3. INDOMETHACIN [Suspect]
     Dosage: UNK

REACTIONS (1)
  - Drug hypersensitivity [Unknown]
